FAERS Safety Report 13978465 (Version 2)
Quarter: 2020Q3

REPORT INFORMATION
  Report Type: Report from Study
  Country: FR (occurrence: FR)
  Receive Date: 20170915
  Receipt Date: 20200304
  Transmission Date: 20201104
  Serious: Yes (Hospitalization)
  Sender: FDA-Public Use
  Company Number: FR-JNJFOC-20170911166

PATIENT
  Age: 76 Year
  Sex: Male

DRUGS (7)
  1. DOXORUBICIN HYDROCHLORIDE. [Suspect]
     Active Substance: DOXORUBICIN HYDROCHLORIDE
     Indication: LEIOMYOSARCOMA
     Route: 042
     Dates: start: 20170529, end: 2017
  2. DOXORUBICIN HYDROCHLORIDE. [Suspect]
     Active Substance: DOXORUBICIN HYDROCHLORIDE
     Dosage: (CYCLE 5) CUMULATIVE DOSE: 600.0 MG
     Route: 042
     Dates: start: 20170828, end: 20170828
  3. TRABECTEDIN [Suspect]
     Active Substance: TRABECTEDIN
     Dosage: (CYCLE 5) CUMULATIVE DOSE: 9.70 MG
     Route: 042
     Dates: start: 20170828, end: 20170828
  4. KARDEGIC [Concomitant]
     Active Substance: ASPIRIN DL-LYSINE
     Route: 048
  5. INEXIUM [Concomitant]
     Active Substance: ESOMEPRAZOLE
     Route: 048
  6. TRABECTEDIN [Suspect]
     Active Substance: TRABECTEDIN
     Indication: LEIOMYOSARCOMA
     Route: 042
     Dates: start: 20170529, end: 2017
  7. SPAGULAX [Concomitant]
     Active Substance: PLANTAGO OVATA SEED
     Route: 048

REACTIONS (2)
  - Asthenia [Recovered/Resolved]
  - Pyrexia [Recovered/Resolved]

NARRATIVE: CASE EVENT DATE: 20170905
